FAERS Safety Report 8405747-8 (Version None)
Quarter: 2012Q2

REPORT INFORMATION
  Report Type: 
  Country: None (occurrence: None)
  Receive Date: 20120323
  Receipt Date: 20110829
  Transmission Date: 20120825
  Serious: Yes (Hospitalization)
  Sender: FDA-Public Use
  Company Number: 163-21880-11052057

PATIENT
  Age: 70 Year
  Sex: Male
  Weight: 79.3795 kg

DRUGS (1)
  1. REVLIMID [Suspect]
     Indication: MULTIPLE MYELOMA
     Dosage: 25 MG, DAILY X 21 DAYS/OFF 7 DAYS, PO
     Route: 048
     Dates: start: 20110201

REACTIONS (4)
  - FULL BLOOD COUNT DECREASED [None]
  - HAEMOGLOBIN DECREASED [None]
  - FLUID RETENTION [None]
  - PLATELET COUNT DECREASED [None]
